FAERS Safety Report 4379287-X (Version None)
Quarter: 2004Q2

REPORT INFORMATION
  Report Type: 
  Country: None (occurrence: None)
  Receive Date: 20040614
  Receipt Date: 20040528
  Transmission Date: 20050107
  Serious: Yes (Other)
  Sender: FDA-Public Use
  Company Number: ZONI001442

PATIENT
  Age: 4 Year
  Sex: Female

DRUGS (1)
  1. ZONEGRAN [Suspect]
     Indication: GRAND MAL CONVULSION
     Dosage: 50 MG DAILY ORAL
     Route: 048
     Dates: start: 20040320

REACTIONS (4)
  - ELECTROENCEPHALOGRAM ABNORMAL [None]
  - FALL [None]
  - SOMNOLENCE [None]
  - UPPER LIMB FRACTURE [None]
